FAERS Safety Report 9404989 (Version 2)
Quarter: 2013Q3

REPORT INFORMATION
  Report Type: Spontaneous
  Country: US (occurrence: US)
  Receive Date: 20130717
  Receipt Date: 20130812
  Transmission Date: 20140515
  Serious: Yes (Other)
  Sender: FDA-Public Use
  Company Number: ALCN2013US000518

PATIENT
  Age: 72 Year
  Sex: Female
  Weight: 86.17 kg

DRUGS (4)
  1. AZOPT [Suspect]
     Dosage: 1 GTT, BID
     Route: 047
     Dates: start: 20130403, end: 201306
  2. AZOPT [Suspect]
     Dosage: UNK
     Dates: start: 20130728
  3. TIMOLOL [Suspect]
     Dosage: 1 GTT, BID
     Route: 047
     Dates: start: 2013
  4. TRAVATAN Z [Suspect]
     Dosage: 1 GTT, QD
     Route: 047

REACTIONS (3)
  - Dupuytren^s contracture [Recovering/Resolving]
  - Neoplasm skin [Recovering/Resolving]
  - Pain in extremity [Recovering/Resolving]
